FAERS Safety Report 10060936 (Version 4)
Quarter: 2014Q2

REPORT INFORMATION
  Report Type: Report from Study
  Country: IE (occurrence: IE)
  Receive Date: 20140404
  Receipt Date: 20140523
  Transmission Date: 20141212
  Serious: Yes (Hospitalization, Other)
  Sender: FDA-Public Use
  Company Number: US-ASTRAZENECA-2014SE05208

PATIENT
  Age: 491 Day
  Sex: Male

DRUGS (2)
  1. SYNAGIS [Suspect]
     Indication: TRISOMY 21
     Route: 030
     Dates: start: 20131021
  2. MONOTRIM [Concomitant]
     Indication: PRODUCT USED FOR UNKNOWN INDICATION
     Dosage: UNKNOWN
     Route: 065

REACTIONS (5)
  - Retching [Unknown]
  - Cough [Unknown]
  - Lung consolidation [Unknown]
  - Respiratory tract congestion [Unknown]
  - Wheezing [Recovering/Resolving]
